FAERS Safety Report 4804661-4 (Version None)
Quarter: 2005Q4

REPORT INFORMATION
  Report Type: 
  Country: None (occurrence: None)
  Receive Date: 20051020
  Receipt Date: 20050211
  Transmission Date: 20060501
  Serious: Yes (Death, Hospitalization)
  Sender: FDA-Public Use
  Company Number: US-MERCK-0502USA01559

PATIENT
  Age: 64 Year
  Sex: Female
  Weight: 136 kg

DRUGS (27)
  1. ZESTRIL [Concomitant]
     Indication: HYPERTENSION
     Route: 065
     Dates: start: 19981201, end: 20020201
  2. LIPITOR [Concomitant]
     Indication: BLOOD CHOLESTEROL INCREASED
     Route: 065
     Dates: start: 19990101, end: 20020201
  3. CYCLOBENZAPRINE HYDROCHLORIDE [Concomitant]
     Route: 065
     Dates: start: 20000101
  4. METOPROLOL [Concomitant]
     Indication: HYPERTENSION
     Route: 065
     Dates: start: 19981201, end: 20020201
  5. NAPROXEN SODIUM [Concomitant]
     Route: 065
     Dates: start: 20000701
  6. NAPROXEN SODIUM [Concomitant]
     Route: 065
     Dates: start: 20000801
  7. HYDROCODONE BITARTRATE [Concomitant]
     Route: 065
     Dates: start: 20000701, end: 20000801
  8. NEURONTIN [Concomitant]
     Route: 065
     Dates: start: 20000101
  9. MAXAIR [Concomitant]
     Route: 065
  10. LOPRESSOR [Concomitant]
     Indication: HYPERTENSION
     Route: 065
     Dates: start: 19981201, end: 20020201
  11. CILOXAN [Concomitant]
     Route: 065
  12. ALLEGRA [Concomitant]
     Indication: HYPERSENSITIVITY
     Route: 065
  13. NASONEX [Concomitant]
     Indication: HYPERSENSITIVITY
     Route: 065
  14. SMZ-TMP [Concomitant]
     Route: 065
  15. IMDUR [Concomitant]
     Indication: PROPHYLAXIS
     Route: 065
  16. HUMIBID [Concomitant]
     Route: 065
  17. VICODIN [Concomitant]
     Route: 065
     Dates: start: 20000801
  18. FLEXERIL [Concomitant]
     Route: 065
     Dates: start: 20000101
  19. MOTRIN [Concomitant]
     Route: 065
     Dates: start: 19990101, end: 20000101
  20. ASPIRIN [Concomitant]
     Indication: PROPHYLAXIS
     Route: 065
     Dates: start: 19981201, end: 20020201
  21. RANITIDINE [Concomitant]
     Route: 065
  22. VIOXX [Suspect]
     Indication: OSTEOARTHRITIS
     Route: 048
     Dates: start: 20000516, end: 20020208
  23. VIOXX [Suspect]
     Route: 048
     Dates: start: 20000516, end: 20020208
  24. VIOXX [Suspect]
     Indication: BACK PAIN
     Route: 048
     Dates: start: 20000516, end: 20020208
  25. VIOXX [Suspect]
     Route: 048
     Dates: start: 20000516, end: 20020208
  26. LEVAQUIN [Concomitant]
     Route: 065
  27. GLUCOTROL [Concomitant]
     Indication: DIABETES MELLITUS
     Route: 065

REACTIONS (15)
  - ACUTE MYOCARDIAL INFARCTION [None]
  - ANGIODYSPLASIA [None]
  - CARDIAC ARREST [None]
  - CONVULSION [None]
  - CORONARY ARTERY DISEASE [None]
  - DEEP VEIN THROMBOSIS [None]
  - DIABETES MELLITUS [None]
  - EMOTIONAL DISTRESS [None]
  - FEAR [None]
  - GASTROOESOPHAGEAL REFLUX DISEASE [None]
  - HYPERTENSION [None]
  - OBESITY [None]
  - OCCULT BLOOD POSITIVE [None]
  - SPINAL COLUMN STENOSIS [None]
  - SPINAL DISORDER [None]
